FAERS Safety Report 7063091-8 (Version None)
Quarter: 2010Q4

REPORT INFORMATION
  Report Type: 
  Country: None (occurrence: None)
  Receive Date: 20101026
  Receipt Date: 20100413
  Transmission Date: 20110411
  Serious: No
  Sender: FDA-Public Use
  Company Number: US-PFIZER INC-2010047711

PATIENT
  Age: 53 Year
  Sex: Male
  Weight: 81.646 kg

DRUGS (6)
  1. LIPITOR [Suspect]
     Indication: BLOOD CHOLESTEROL
     Dosage: 40 MG, 1X/DAY
     Route: 048
     Dates: start: 20100301, end: 20100301
  2. DIOVAN [Concomitant]
     Indication: BLOOD PRESSURE
     Dosage: UNK
  3. VERAPAMIL [Concomitant]
     Indication: EXTRASYSTOLES
     Dosage: UNK
     Dates: start: 20090101
  4. COVERA-HS [Concomitant]
     Indication: EXTRASYSTOLES
     Dosage: UNK
     Dates: end: 20090101
  5. PROPECIA [Concomitant]
     Indication: ALOPECIA
     Dosage: UNK
  6. ZOCOR [Concomitant]
     Indication: BLOOD CHOLESTEROL
     Dates: end: 20100301

REACTIONS (4)
  - ACNE [None]
  - ALOPECIA [None]
  - HAIR GROWTH ABNORMAL [None]
  - THIRST [None]
